FAERS Safety Report 21174426 (Version 1)
Quarter: 2022Q3

REPORT INFORMATION
  Report Type: Spontaneous
  Country: AU (occurrence: AU)
  Receive Date: 20220804
  Receipt Date: 20220804
  Transmission Date: 20221027
  Serious: Yes (Other)
  Sender: FDA-Public Use
  Company Number: AU-drreddys-SPO/AUS/22/0152974

PATIENT
  Sex: Female

DRUGS (1)
  1. MELOXICAM [Suspect]
     Active Substance: MELOXICAM
     Indication: Product used for unknown indication

REACTIONS (6)
  - Skin cancer [Unknown]
  - Bronchiectasis [Unknown]
  - Rib fracture [Unknown]
  - Osteoporosis [Unknown]
  - Arthritis [Unknown]
  - Cough [Unknown]
